FAERS Safety Report 8614020-4 (Version None)
Quarter: 2012Q3

REPORT INFORMATION
  Report Type: 
  Country: None (occurrence: None)
  Receive Date: 20120823
  Receipt Date: 20120808
  Transmission Date: 20120928
  Serious: Yes (Hospitalization)
  Sender: FDA-Public Use
  Company Number: US-009507513-1208USA004225

PATIENT

DRUGS (1)
  1. INVANZ [Suspect]
     Indication: URINARY TRACT INFECTION
     Dosage: TWICE FOR 4 WEEKS
     Route: 042

REACTIONS (4)
  - BLISTER [None]
  - PYREXIA [None]
  - CHROMATURIA [None]
  - SEPSIS [None]
